FAERS Safety Report 9225179 (Version 1)
Quarter: 2013Q2

REPORT INFORMATION
  Report Type: Spontaneous
  Country: GB (occurrence: None)
  Receive Date: 20130409
  Receipt Date: 20130409
  Transmission Date: 20140414
  Serious: Yes (Other)
  Sender: FDA-Public Use
  Company Number: GER/UKI/13/0028892

PATIENT
  Age: 69 Year
  Sex: Female

DRUGS (1)
  1. ZOLEDRONIC ACID (ZOLEDRONIC ACID) [Suspect]
     Indication: OSTEOPOROSIS
     Route: 042
     Dates: start: 20130315, end: 20130315

REACTIONS (5)
  - Tachycardia [None]
  - Arthralgia [None]
  - Hypotension [None]
  - Hypoxia [None]
  - Body temperature increased [None]
